FAERS Safety Report 23546878 (Version 2)
Quarter: 2024Q2

REPORT INFORMATION
  Report Type: Spontaneous
  Country: GB (occurrence: GB)
  Receive Date: 20240221
  Receipt Date: 20240411
  Transmission Date: 20240715
  Serious: Yes (Other)
  Sender: FDA-Public Use
  Company Number: GB-ASTELLAS-2024US005226

PATIENT
  Age: 59 Year
  Sex: Female

DRUGS (4)
  1. REGADENOSON [Suspect]
     Active Substance: REGADENOSON
     Indication: Magnetic resonance imaging heart
     Route: 042
     Dates: start: 20240209, end: 20240209
  2. REGADENOSON [Suspect]
     Active Substance: REGADENOSON
     Indication: Magnetic resonance imaging heart
     Route: 042
     Dates: start: 20240209, end: 20240209
  3. REGADENOSON [Suspect]
     Active Substance: REGADENOSON
     Indication: Magnetic resonance imaging heart
     Route: 042
     Dates: start: 20240209, end: 20240209
  4. REGADENOSON [Suspect]
     Active Substance: REGADENOSON
     Indication: Magnetic resonance imaging heart
     Route: 042
     Dates: start: 20240209, end: 20240209

REACTIONS (6)
  - Agitation [Recovered/Resolved]
  - Musculoskeletal stiffness [Recovered/Resolved]
  - Dyspnoea [Recovered/Resolved]
  - Heart rate increased [Recovered/Resolved]
  - Chest discomfort [Recovered/Resolved]
  - Dizziness [Recovered/Resolved]

NARRATIVE: CASE EVENT DATE: 20240209
